FAERS Safety Report 5120624-6 (Version None)
Quarter: 2006Q4

REPORT INFORMATION
  Report Type: 
  Country: None (occurrence: None)
  Receive Date: 20061004
  Receipt Date: 20060703
  Transmission Date: 20070319
  Serious: Yes (Hospitalization, Other)
  Sender: FDA-Public Use
  Company Number: IT-ABBOTT-06P-083-0337353-01

PATIENT
  Sex: Female
  Weight: 64 kg

DRUGS (10)
  1. HUMIRA [Suspect]
     Indication: RHEUMATOID ARTHRITIS
     Route: 058
     Dates: start: 20041006, end: 20060629
  2. HUMIRA [Concomitant]
     Indication: RHEUMATOID ARTHRITIS
     Route: 058
     Dates: start: 20040831
  3. DIBASE [Concomitant]
     Indication: OSTEOPOROSIS
     Dates: start: 20060410
  4. KERAFLOX [Concomitant]
     Indication: INFECTION PROPHYLAXIS
     Dates: start: 20060613, end: 20060620
  5. METHOTREXATE [Concomitant]
     Indication: RHEUMATOID ARTHRITIS
     Dates: start: 20020101, end: 20060625
  6. CALCIUM FOLINATE [Concomitant]
     Indication: RHEUMATOID ARTHRITIS
     Dates: start: 20030101, end: 20060623
  7. METHYLPREDNISOLONE [Concomitant]
     Indication: RHEUMATOID ARTHRITIS
     Dates: start: 20000101
  8. OMEPRAZOLE [Concomitant]
     Indication: DRUG USE FOR UNKNOWN INDICATION
     Dates: start: 20020101
  9. UREICON [Concomitant]
     Indication: CHOLELITHIASIS
     Dates: start: 20051206
  10. NETRIXIA [Concomitant]
     Indication: OSTEOPOROSIS
     Dates: start: 20060202

REACTIONS (1)
  - BLADDER CANCER [None]
